FAERS Safety Report 21992618 (Version 1)
Quarter: 2023Q1

REPORT INFORMATION
  Report Type: Spontaneous
  Country: US (occurrence: US)
  Receive Date: 20230215
  Receipt Date: 20230215
  Transmission Date: 20230418
  Serious: No
  Sender: FDA-Public Use
  Company Number: US-TARO PHARMACEUTICALS USA INC.-2022TAR01406

PATIENT

DRUGS (1)
  1. CLOCORTOLONE PIVALATE [Suspect]
     Active Substance: CLOCORTOLONE PIVALATE
     Indication: Product used for unknown indication
     Dosage: UNK, ONCE
     Route: 061

REACTIONS (3)
  - Paraesthesia [Unknown]
  - Swelling face [Unknown]
  - Application site inflammation [Unknown]
